FAERS Safety Report 4415194-1 (Version None)
Quarter: 2004Q3

REPORT INFORMATION
  Report Type: 
  Country: None (occurrence: None)
  Receive Date: 20040730
  Receipt Date: 20040721
  Transmission Date: 20050211
  Serious: Yes (Life-Threatening, Hospitalization, Other)
  Sender: FDA-Public Use
  Company Number: 2004RL000074

PATIENT
  Age: 74 Year
  Sex: Male

DRUGS (6)
  1. PROPAFENONE HCL [Suspect]
     Indication: ATRIAL FIBRILLATION
     Dosage: 225 MG; BID; PO
     Route: 048
     Dates: start: 20000501
  2. PRIMIDONE [Suspect]
     Indication: MYALGIA
     Dosage: PO
     Route: 048
  3. MYSOLINE [Concomitant]
  4. AMLODIPINE BESYLATE [Concomitant]
  5. ROFECOXIB [Concomitant]
  6. NULYTELY [Concomitant]

REACTIONS (7)
  - ATRIAL FIBRILLATION [None]
  - DIZZINESS [None]
  - DRUG INTERACTION [None]
  - LOSS OF CONSCIOUSNESS [None]
  - MYALGIA [None]
  - SYNCOPE [None]
  - TACHYCARDIA [None]
